FAERS Safety Report 5674825-9 (Version None)
Quarter: 2008Q1

REPORT INFORMATION
  Report Type: 
  Country: None (occurrence: None)
  Receive Date: 20080320
  Receipt Date: 20080313
  Transmission Date: 20080703
  Serious: Yes (Hospitalization, Disabling, Other)
  Sender: FDA-Public Use
  Company Number: AU-AVENTIS-200811184GDDC

PATIENT
  Age: 86 Year
  Sex: Male

DRUGS (4)
  1. ANANDRON [Suspect]
     Dosage: DOSE: UNK
  2. ALLOPURINOL [Concomitant]
     Route: 048
  3. TRANYLCYPROMINE SULFATE [Concomitant]
     Indication: DEPRESSION
     Route: 048
  4. LIPITOR [Concomitant]
     Indication: VASCULAR DEMENTIA
     Route: 048

REACTIONS (6)
  - CONDITION AGGRAVATED [None]
  - DUODENAL ULCER [None]
  - GASTROINTESTINAL HAEMORRHAGE [None]
  - INTERSTITIAL LUNG DISEASE [None]
  - RENAL FAILURE [None]
  - VASCULAR DEMENTIA [None]
